FAERS Safety Report 13375052 (Version 1)
Quarter: 2017Q1

REPORT INFORMATION
  Report Type: Not Available
  Country: ES (occurrence: ES)
  Receive Date: 20170327
  Receipt Date: 20170327
  Transmission Date: 20170429
  Serious: Yes (Other)
  Sender: FDA-Public Use
  Company Number: ES-ANIPHARMA-2017-ES-000010

PATIENT
  Age: 12 Year
  Sex: Female
  Weight: 38 kg

DRUGS (1)
  1. IBUPROFEN (NON-SPECIFIC) [Suspect]
     Active Substance: IBUPROFEN
     Dosage: 10MG/KG/8H
     Route: 065

REACTIONS (1)
  - Tubulointerstitial nephritis [Recovered/Resolved]
